FAERS Safety Report 23732107 (Version 1)
Quarter: 2024Q2

REPORT INFORMATION
  Report Type: Spontaneous
  Country: US (occurrence: None)
  Receive Date: 20240410
  Receipt Date: 20240410
  Transmission Date: 20240717
  Serious: Yes (Disabling)
  Sender: FDA-Public Use
  Company Number: None

PATIENT
  Age: 38 Year
  Sex: Female

DRUGS (1)
  1. RINVOQ [Suspect]
     Active Substance: UPADACITINIB
     Dates: start: 20210410, end: 20210831

REACTIONS (2)
  - Blood cholesterol increased [None]
  - Injury [None]

NARRATIVE: CASE EVENT DATE: 20240410
